FAERS Safety Report 9682543 (Version 4)
Quarter: 2014Q1

REPORT INFORMATION
  Report Type: Report from Study
  Country: US (occurrence: US)
  Receive Date: 20131112
  Receipt Date: 20140110
  Transmission Date: 20141002
  Serious: Yes (Hospitalization, Other)
  Sender: FDA-Public Use
  Company Number: US-ROCHE-1271116

PATIENT
  Sex: Male

DRUGS (6)
  1. PEGASYS [Suspect]
     Indication: CHRONIC HEPATITIS C
     Dosage: PROCLICK
     Route: 065
     Dates: start: 20130809, end: 201312
  2. RIBAVIRIN [Suspect]
     Indication: CHRONIC HEPATITIS C
     Route: 065
     Dates: start: 20130809, end: 201312
  3. RIBAVIRIN [Suspect]
     Route: 065
  4. RIBAVIRIN [Suspect]
     Route: 065
  5. BOCEPREVIR [Suspect]
     Indication: CHRONIC HEPATITIS C
     Route: 065
     Dates: end: 201311
  6. SERTRALINE [Concomitant]
     Indication: DEPRESSION
     Route: 065

REACTIONS (29)
  - Hypotension [Unknown]
  - Insomnia [Unknown]
  - Fatigue [Unknown]
  - Pain [Unknown]
  - Hypophagia [Unknown]
  - Blood potassium decreased [Unknown]
  - Pain [Unknown]
  - Neuropathy peripheral [Unknown]
  - Retching [Unknown]
  - Dizziness postural [Unknown]
  - Dysgeusia [Unknown]
  - Back pain [Not Recovered/Not Resolved]
  - Malaise [Unknown]
  - Dyspnoea [Not Recovered/Not Resolved]
  - Abasia [Unknown]
  - Dizziness [Not Recovered/Not Resolved]
  - Chest discomfort [Unknown]
  - Arthralgia [Unknown]
  - Joint lock [Unknown]
  - Nausea [Unknown]
  - Vomiting [Unknown]
  - Sciatica [Not Recovered/Not Resolved]
  - Joint swelling [Unknown]
  - Confusional state [Unknown]
  - Heart rate increased [Unknown]
  - Dysgeusia [Unknown]
  - Arrhythmia [Unknown]
  - Loss of consciousness [Unknown]
  - Fall [Unknown]
